FAERS Safety Report 24455005 (Version 2)
Quarter: 2024Q4

REPORT INFORMATION
  Report Type: Report from Study
  Country: US (occurrence: US)
  Receive Date: 20241017
  Receipt Date: 20241018
  Transmission Date: 20250115
  Serious: No
  Sender: ROCHE
  Company Number: US-ROCHE-3469859

PATIENT
  Age: 52 Year
  Sex: Female

DRUGS (10)
  1. RITUXAN [Suspect]
     Active Substance: RITUXIMAB
     Indication: Product used for unknown indication
     Route: 065
  2. AMPYRA [Suspect]
     Active Substance: DALFAMPRIDINE
     Indication: Multiple sclerosis
     Route: 048
     Dates: start: 20150722
  3. XANAX [Concomitant]
     Active Substance: ALPRAZOLAM
  4. ASCORBIC ACID [Concomitant]
     Active Substance: ASCORBIC ACID
  5. B 12 [Concomitant]
  6. BACLOFEN [Concomitant]
     Active Substance: BACLOFEN
  7. LORATADINE [Concomitant]
     Active Substance: LORATADINE
  8. ESCITALOPRAM [Concomitant]
     Active Substance: ESCITALOPRAM OXALATE
  9. MAG CITRATE [Concomitant]
  10. VALACYCLOVIR [Concomitant]
     Active Substance: VALACYCLOVIR HYDROCHLORIDE

REACTIONS (6)
  - Pain [Unknown]
  - COVID-19 [Not Recovered/Not Resolved]
  - Pneumonia bacterial [Not Recovered/Not Resolved]
  - Illness [Unknown]
  - Dizziness [Unknown]
  - Balance disorder [Unknown]
